FAERS Safety Report 5647848-3 (Version None)
Quarter: 2008Q1

REPORT INFORMATION
  Report Type: 
  Country: None (occurrence: None)
  Receive Date: 20080303
  Receipt Date: 20080227
  Transmission Date: 20080703
  Serious: Yes (Death)
  Sender: FDA-Public Use
  Company Number: NL-BOEHRINGER INGELHEIM GMBH, GERMANY-2007-DE-04498GD

PATIENT

DRUGS (2)
  1. NEVIRAPINE [Suspect]
     Indication: HIV INFECTION
  2. ANTI-HIV AGENTS [Concomitant]
     Indication: HIV INFECTION

REACTIONS (4)
  - DEATH [None]
  - HEPATOTOXICITY [None]
  - HYPERSENSITIVITY [None]
  - RASH [None]
